FAERS Safety Report 9144420 (Version 2)
Quarter: 2013Q2

REPORT INFORMATION
  Report Type: Report from Study
  Country: CA (occurrence: CA)
  Receive Date: 20130306
  Receipt Date: 20130423
  Transmission Date: 20140414
  Serious: Yes (Life-Threatening, Hospitalization)
  Sender: FDA-Public Use
  Company Number: CA-ROCHE-1177919

PATIENT
  Age: 62 Year
  Sex: Male
  Weight: 160 kg

DRUGS (25)
  1. TOCILIZUMAB [Suspect]
     Indication: RHEUMATOID ARTHRITIS
     Dosage: DATE OF LAST DOSE PROIR TO SAE:14/NOV/2012
     Route: 042
     Dates: start: 20120725
  2. TOCILIZUMAB [Suspect]
     Route: 042
     Dates: start: 20120822
  3. TOCILIZUMAB [Suspect]
     Route: 042
     Dates: start: 20120919
  4. TOCILIZUMAB [Suspect]
     Route: 042
     Dates: start: 20121017
  5. TOCILIZUMAB [Suspect]
     Route: 042
     Dates: start: 20121212
  6. GABAPENTIN [Concomitant]
     Route: 065
  7. MORPHINE [Concomitant]
     Route: 065
  8. MORPHINE [Concomitant]
     Route: 065
     Dates: start: 20130113
  9. ALTACE [Concomitant]
     Dosage: 2.5/12.5 MG
     Route: 065
     Dates: start: 20050101
  10. ASA [Concomitant]
     Route: 048
     Dates: start: 20080101
  11. ATIVAN [Concomitant]
     Route: 065
     Dates: start: 20080101
  12. CRESTOR [Concomitant]
     Route: 065
     Dates: start: 20080101
  13. DOMPERIDONE [Concomitant]
     Route: 065
     Dates: start: 20090101
  14. METFORMIN [Concomitant]
     Route: 065
     Dates: start: 20000101
  15. HUMULIN [Concomitant]
     Dosage: 100 UNIT IV
     Route: 065
     Dates: start: 20090101
  16. OXEZE TURBUHALER [Concomitant]
     Dosage: 3 PUFFS
     Route: 065
     Dates: start: 20091201, end: 20121101
  17. SYNTHROID [Concomitant]
     Route: 065
     Dates: start: 20091217
  18. BENADRYL [Concomitant]
     Route: 048
     Dates: start: 20120726
  19. KETOCONAZOLE [Concomitant]
     Route: 065
     Dates: start: 20121114
  20. FOLIC ACID [Concomitant]
     Route: 048
     Dates: start: 20120101
  21. SULFASALAZINE [Concomitant]
     Route: 048
     Dates: start: 20090708
  22. IMURAN [Concomitant]
     Route: 065
     Dates: start: 20090610
  23. BETADERM (CANADA) [Concomitant]
     Route: 061
     Dates: start: 20090101
  24. PLAQUENIL [Concomitant]
     Route: 048
     Dates: start: 20050628
  25. PREDNISONE [Concomitant]
     Route: 048
     Dates: start: 20050101

REACTIONS (2)
  - Delirium [Recovered/Resolved]
  - Localised infection [Recovered/Resolved]
